FAERS Safety Report 11435278 (Version 2)
Quarter: 2015Q3

REPORT INFORMATION
  Report Type: Spontaneous
  Country: JP (occurrence: JP)
  Receive Date: 20150831
  Receipt Date: 20150924
  Transmission Date: 20151125
  Serious: Yes (Other)
  Sender: FDA-Public Use
  Company Number: JP-SA-2015SA128545

PATIENT
  Age: 63 Year
  Sex: Male

DRUGS (13)
  1. WARFARIN [Concomitant]
     Active Substance: WARFARIN
     Dates: end: 20100724
  2. PLAVIX [Suspect]
     Active Substance: CLOPIDOGREL BISULFATE
     Route: 048
     Dates: start: 20100720
  3. ALDACTONE-A [Concomitant]
     Active Substance: SPIRONOLACTONE
     Dates: end: 20100724
  4. ARTIST [Concomitant]
     Active Substance: CARVEDILOL
  5. HEPARIN SODIUM. [Concomitant]
     Active Substance: HEPARIN SODIUM
     Dates: end: 20100721
  6. HEPARIN SODIUM. [Concomitant]
     Active Substance: HEPARIN SODIUM
     Dates: end: 20100726
  7. ADALAT CC [Concomitant]
     Active Substance: NIFEDIPINE
  8. BLOPRESS [Concomitant]
     Active Substance: CANDESARTAN CILEXETIL
  9. ASPIRIN. [Concomitant]
     Active Substance: ASPIRIN
     Dates: start: 20100712
  10. MYOCOR [Concomitant]
     Dates: end: 20100725
  11. SIGMART [Concomitant]
     Active Substance: NICORANDIL
  12. LASIX [Concomitant]
     Active Substance: FUROSEMIDE
  13. NICARPINE [Concomitant]
     Active Substance: NICARDIPINE
     Dates: end: 20100724

REACTIONS (3)
  - Ventricular fibrillation [Unknown]
  - Epistaxis [Recovered/Resolved]
  - Ventricular tachycardia [Unknown]

NARRATIVE: CASE EVENT DATE: 20100726
